FAERS Safety Report 23331283 (Version 2)
Quarter: 2024Q1

REPORT INFORMATION
  Report Type: Spontaneous
  Country: BR (occurrence: BR)
  Receive Date: 20231222
  Receipt Date: 20240102
  Transmission Date: 20240409
  Serious: Yes (Other)
  Sender: FDA-Public Use
  Company Number: BR-CHEPLA-2023016092

PATIENT
  Sex: Female
  Weight: 57 kg

DRUGS (8)
  1. CLONAZEPAM [Suspect]
     Active Substance: CLONAZEPAM
     Indication: Panic disorder
     Dosage: (FOR 30 YEARS), 2 OR 3 TIMES A DAY??DAILY DOSE: 1 DOSAGE FORM
     Route: 048
     Dates: start: 1993, end: 2017
  2. CLONAZEPAM [Suspect]
     Active Substance: CLONAZEPAM
     Indication: Panic disorder
     Dosage: (FOR 30 YEARS), 2 OR 3 TIMES A DAY??DAILY DOSE: 1 DOSAGE FORM
     Route: 060
     Dates: start: 2017
  3. CLONAZEPAM [Suspect]
     Active Substance: CLONAZEPAM
     Indication: Panic disorder
     Dates: start: 2022
  4. ASPIRIN [Concomitant]
     Active Substance: ASPIRIN
     Indication: Cardiac disorder
     Dosage: DAILY DOSE: 1 DOSAGE FORM
     Route: 048
  5. ALDACTONE [Concomitant]
     Active Substance: SPIRONOLACTONE
     Indication: Cardiac disorder
     Dosage: DAILY DOSE: 1 DOSAGE FORM
     Route: 048
  6. BISOPROLOL FUMARATE [Concomitant]
     Active Substance: BISOPROLOL FUMARATE
     Indication: Cardiac disorder
     Dosage: TWICE A DAY??DAILY DOSE: 2 DOSAGE FORM
     Route: 048
  7. IVABRADINE [Concomitant]
     Active Substance: IVABRADINE
     Indication: Cardiac disorder
     Dosage: TWICE A DAY ?DAILY DOSE: 2 DOSAGE FORM
     Route: 048
  8. Astrazeneca vaccine [Concomitant]
     Dates: start: 2022, end: 2022

REACTIONS (7)
  - Pulmonary oedema [Not Recovered/Not Resolved]
  - Drug dependence [Not Recovered/Not Resolved]
  - Infarction [Recovered/Resolved]
  - Cellulite [Recovered/Resolved with Sequelae]
  - Pulmonary mass [Not Recovered/Not Resolved]
  - Incorrect route of product administration [Not Recovered/Not Resolved]
  - Blood cholesterol increased [Not Recovered/Not Resolved]

NARRATIVE: CASE EVENT DATE: 20170101
